FAERS Safety Report 6963693-0 (Version None)
Quarter: 2010Q3

REPORT INFORMATION
  Report Type: 
  Country: None (occurrence: None)
  Receive Date: 20100902
  Receipt Date: 20100825
  Transmission Date: 20110219
  Serious: Yes (Congenital Anomaly)
  Sender: FDA-Public Use
  Company Number: US-GILEAD-2010-0031353

PATIENT

DRUGS (3)
  1. TRUVADA [Suspect]
     Indication: HIV INFECTION
     Route: 064
  2. NORVIR [Concomitant]
     Indication: HIV INFECTION
     Route: 064
     Dates: start: 20100611
  3. PREZISTA [Concomitant]
     Indication: HIV INFECTION
     Route: 064
     Dates: start: 20100608

REACTIONS (1)
  - ULTRASOUND ANTENATAL SCREEN ABNORMAL [None]
